FAERS Safety Report 9983914 (Version 1)
Quarter: 2014Q1

REPORT INFORMATION
  Report Type: Report from Study
  Country: US (occurrence: US)
  Receive Date: 20140307
  Receipt Date: 20140307
  Transmission Date: 20141002
  Serious: No
  Sender: FDA-Public Use
  Company Number: US-ABBVIE-13P-163-1184104-00

PATIENT
  Age: 64 Year
  Sex: Male
  Weight: 106.69 kg

DRUGS (1)
  1. HUMIRA [Suspect]
     Indication: RHEUMATOID ARTHRITIS
     Route: 058
     Dates: start: 20131002

REACTIONS (5)
  - Paranasal sinus hypersecretion [Recovered/Resolved]
  - Nasal discharge discolouration [Recovered/Resolved]
  - Secretion discharge [Recovered/Resolved]
  - Injection site pain [Not Recovered/Not Resolved]
  - Lower respiratory tract infection [Recovered/Resolved]
